FAERS Safety Report 6853856-7 (Version None)
Quarter: 2010Q3

REPORT INFORMATION
  Report Type: 
  Country: None (occurrence: None)
  Receive Date: 20100717
  Receipt Date: 20071223
  Transmission Date: 20110219
  Serious: No
  Sender: FDA-Public Use
  Company Number: US-PFIZER INC-2007108248

PATIENT
  Sex: Male
  Weight: 70.454 kg

DRUGS (3)
  1. CHANTIX [Suspect]
     Indication: SMOKING CESSATION THERAPY
     Dates: start: 20071219
  2. PREDNISOLONE [Concomitant]
     Dates: start: 20071219
  3. AZITHROMYCIN [Concomitant]
     Dates: start: 20071219

REACTIONS (5)
  - BODY TEMPERATURE DECREASED [None]
  - FEELING ABNORMAL [None]
  - FEELING DRUNK [None]
  - IRRITABILITY [None]
  - TOOTHACHE [None]
